FAERS Safety Report 10383887 (Version 2)
Quarter: 2014Q4

REPORT INFORMATION
  Report Type: Spontaneous
  Country: US (occurrence: US)
  Receive Date: 20140814
  Receipt Date: 20141118
  Transmission Date: 20150528
  Serious: Yes (Hospitalization, Other)
  Sender: FDA-Public Use
  Company Number: US-JNJFOC-20140808856

PATIENT
  Age: 59 Year
  Sex: Female
  Weight: 90.58 kg

DRUGS (8)
  1. REMICADE [Suspect]
     Active Substance: INFLIXIMAB
     Indication: CROHN^S DISEASE
     Dosage: INITIATED ^AT LEAST^ ON 2009
     Route: 042
     Dates: start: 20050401, end: 20140707
  2. ASA [Concomitant]
     Active Substance: ASPIRIN
     Indication: CARDIAC DISORDER
     Route: 065
  3. MOBIC [Concomitant]
     Active Substance: MELOXICAM
     Indication: BACK PAIN
     Route: 065
  4. BENTYL [Concomitant]
     Active Substance: DICYCLOMINE HYDROCHLORIDE
     Indication: ABDOMINAL PAIN
     Route: 065
  5. PURINETHOL [Suspect]
     Active Substance: MERCAPTOPURINE
     Indication: CROHN^S DISEASE
     Dosage: 50 TO 75 MG
     Route: 048
     Dates: start: 2000, end: 2007
  6. CITALOPRAM [Concomitant]
     Active Substance: CITALOPRAM HYDROBROMIDE
     Indication: DEPRESSION
     Route: 065
  7. ACTIVELLE (ESTRADIOL AND NORETHINDRONE) [Concomitant]
     Indication: HORMONE REPLACEMENT THERAPY
     Route: 065
  8. 6-MP [Suspect]
     Active Substance: MERCAPTOPURINE
     Indication: CROHN^S DISEASE
     Route: 048
     Dates: start: 2007, end: 2011

REACTIONS (6)
  - Metastases to liver [Unknown]
  - Plasma cell myeloma [Unknown]
  - Herpes zoster [Unknown]
  - Blood glucose increased [Unknown]
  - Breast cancer stage IV [Unknown]
  - Metastases to bone [Unknown]

NARRATIVE: CASE EVENT DATE: 2013
